FAERS Safety Report 20573275 (Version 1)
Quarter: 2022Q1

REPORT INFORMATION
  Report Type: Other
  Country: US (occurrence: None)
  Receive Date: 20220309
  Receipt Date: 20220309
  Transmission Date: 20220424
  Serious: No
  Sender: FDA-Public Use
  Company Number: US-ROCHE-3041924

PATIENT
  Sex: Female
  Weight: 82.628 kg

DRUGS (7)
  1. OCREVUS [Suspect]
     Active Substance: OCRELIZUMAB
     Indication: Relapsing-remitting multiple sclerosis
     Route: 042
  2. ATENOLOL [Concomitant]
     Active Substance: ATENOLOL
     Dosage: TAKING FOR 5 YEARS; YES
  3. HYDROCHLOROTHIAZIDE [Concomitant]
     Active Substance: HYDROCHLOROTHIAZIDE
     Dosage: YES
  4. PROTONIX (PHILIPPINES) [Concomitant]
     Indication: Gastrooesophageal reflux disease
     Dosage: TAKING FOR 6 YEARS;YES
  5. LEXAPRO [Concomitant]
     Active Substance: ESCITALOPRAM OXALATE
     Dosage: YES
  6. KLONOPIN [Concomitant]
     Active Substance: CLONAZEPAM
     Dosage: YES
  7. TYSABRI [Concomitant]
     Active Substance: NATALIZUMAB

REACTIONS (2)
  - COVID-19 [Recovered/Resolved]
  - Bronchitis [Recovered/Resolved]
